FAERS Safety Report 6910643-9 (Version None)
Quarter: 2010Q3

REPORT INFORMATION
  Report Type: 
  Country: None (occurrence: None)
  Receive Date: 20100806
  Receipt Date: 20100727
  Transmission Date: 20110219
  Serious: Yes (Hospitalization)
  Sender: FDA-Public Use
  Company Number: JP-ROCHE-718084

PATIENT
  Sex: Female
  Weight: 57 kg

DRUGS (3)
  1. TRASTUZUMAB [Suspect]
     Dosage: FORM: INFUSION. LOADING DOSE
     Route: 042
     Dates: start: 20050912
  2. TRASTUZUMAB [Suspect]
     Dosage: MAINTAINANCE DOSE: 6 MG/KG.
     Route: 042
     Dates: start: 20051003, end: 20070830
  3. IBUPROFEN TABLETS [Concomitant]
     Dosage: REPORTED AS: IBUPROFEN/ ALLYL ISOPROPYL ACETYL UREA/ HYDROUS CAFFEINE/ MAGNESIA OXIDE.

REACTIONS (1)
  - OVARIAN NEOPLASM [None]
